FAERS Safety Report 8589176-2 (Version None)
Quarter: 2012Q3

REPORT INFORMATION
  Report Type: 
  Country: None (occurrence: None)
  Receive Date: 20120813
  Receipt Date: 20120731
  Transmission Date: 20120928
  Serious: No
  Sender: FDA-Public Use
  Company Number: US-BAYER-2012-077932

PATIENT
  Sex: Female

DRUGS (1)
  1. CLIMARA PRO [Suspect]

REACTIONS (5)
  - HYPERHIDROSIS [None]
  - SKIN IRRITATION [None]
  - APPLICATION SITE ERYTHEMA [None]
  - APPLICATION SITE DRYNESS [None]
  - INSOMNIA [None]
